FAERS Safety Report 9949555 (Version 1)
Quarter: 2014Q1

REPORT INFORMATION
  Report Type: Report from Study
  Country: US (occurrence: US)
  Receive Date: 20140304
  Receipt Date: 20140304
  Transmission Date: 20141002
  Serious: No
  Sender: FDA-Public Use
  Company Number: US-ABBVIE-13P-163-1070319-00

PATIENT
  Age: 59 Year
  Sex: Female
  Weight: 59.02 kg

DRUGS (5)
  1. HUMIRA [Suspect]
     Indication: SJOGREN^S SYNDROME
     Dates: start: 201303
  2. METHOTREXATE [Concomitant]
     Indication: SJOGREN^S SYNDROME
  3. PREDNISONE [Concomitant]
     Indication: SJOGREN^S SYNDROME
  4. DILANTIN [Concomitant]
     Indication: CONVULSION
  5. BENAZEPRIL [Concomitant]
     Indication: BLOOD PRESSURE

REACTIONS (1)
  - Off label use [Not Recovered/Not Resolved]
